FAERS Safety Report 4805460-X (Version None)
Quarter: 2005Q4

REPORT INFORMATION
  Report Type: 
  Country: None (occurrence: None)
  Receive Date: 20051018
  Receipt Date: 20051005
  Transmission Date: 20060501
  Serious: Yes (Disabling, Other)
  Sender: FDA-Public Use
  Company Number: 2005130800

PATIENT
  Age: 75 Year
  Sex: Male

DRUGS (6)
  1. VIAGRA [Suspect]
     Indication: ILL-DEFINED DISORDER
     Dosage: 100 MG 91 IN 1 M), ORAL
     Route: 048
  2. LEVITRA [Suspect]
     Indication: ERECTILE DYSFUNCTION
     Dosage: 20 MG (2 IN 1 WK), ORAL
     Route: 048
     Dates: start: 20030101
  3. CIALIS [Suspect]
     Indication: ILL-DEFINED DISORDER
     Dosage: 20 MG (2 IN 1 M), ORAL
     Route: 048
  4. TOPROL-XL [Concomitant]
  5. COUMADIN ^BOOTS^ (WARFARIN SOIDUM) [Concomitant]
  6. ALLOPURINOL [Concomitant]

REACTIONS (3)
  - MACULAR DEGENERATION [None]
  - VISUAL ACUITY REDUCED [None]
  - VISUAL DISTURBANCE [None]
